FAERS Safety Report 8114563-6 (Version None)
Quarter: 2012Q1

REPORT INFORMATION
  Report Type: 
  Country: None (occurrence: None)
  Receive Date: 20120206
  Receipt Date: 20120130
  Transmission Date: 20120608
  Serious: No
  Sender: FDA-Public Use
  Company Number: US-PFIZER INC-2012026425

PATIENT
  Sex: Male
  Weight: 66.213 kg

DRUGS (1)
  1. SUTENT [Suspect]
     Indication: RENAL CANCER
     Dosage: 12.5 MG, 3 CAPSULES DAILY
     Route: 048
     Dates: start: 20110201

REACTIONS (1)
  - RASH [None]
